FAERS Safety Report 13059419 (Version 2)
Quarter: 2017Q1

REPORT INFORMATION
  Report Type: Spontaneous
  Country: JP (occurrence: JP)
  Receive Date: 20161223
  Receipt Date: 20170125
  Transmission Date: 20170428
  Serious: Yes (Other)
  Sender: FDA-Public Use
  Company Number: JP-SA-2016SA233436

PATIENT

DRUGS (1)
  1. ANTI-THYMOCYTE GLOBULIN (RABBIT) [Suspect]
     Active Substance: LAPINE T-LYMPHOCYTE IMMUNE GLOBULIN
     Indication: BONE MARROW CONDITIONING REGIMEN
     Route: 065

REACTIONS (5)
  - Cystitis haemorrhagic [Recovered/Resolved with Sequelae]
  - Polyomavirus-associated nephropathy [Unknown]
  - Pollakiuria [Recovered/Resolved with Sequelae]
  - Pain [Recovered/Resolved with Sequelae]
  - General physical health deterioration [Unknown]
